FAERS Safety Report 23922410 (Version 1)
Quarter: 2024Q2

REPORT INFORMATION
  Report Type: Report from Study
  Country: US (occurrence: US)
  Receive Date: 20240531
  Receipt Date: 20240531
  Transmission Date: 20240715
  Serious: Yes (Hospitalization, Other)
  Sender: FDA-Public Use
  Company Number: US-JNJFOC-20240568951

PATIENT
  Age: 75 Year
  Sex: Male

DRUGS (3)
  1. REMICADE [Suspect]
     Active Substance: INFLIXIMAB
     Indication: Colitis ulcerative
     Route: 041
     Dates: start: 20240305
  2. ENTYVIO [Suspect]
     Active Substance: VEDOLIZUMAB
     Route: 065
  3. PREDNISONE [Suspect]
     Active Substance: PREDNISONE
     Route: 065

REACTIONS (8)
  - Pneumonia pseudomonal [Unknown]
  - Cerebrovascular accident [Unknown]
  - Pulmonary embolism [Unknown]
  - Surgery [Unknown]
  - Adverse event [Unknown]
  - Stoma creation [Unknown]
  - COVID-19 [Unknown]
  - Inappropriate schedule of product administration [Unknown]

NARRATIVE: CASE EVENT DATE: 20240517
